FAERS Safety Report 11810731 (Version 1)
Quarter: 2015Q4

REPORT INFORMATION
  Report Type: Spontaneous
  Country: US (occurrence: None)
  Receive Date: 20151207
  Receipt Date: 20151207
  Transmission Date: 20160305
  Serious: Yes (Hospitalization)
  Sender: FDA-Public Use
  Company Number: None

PATIENT
  Age: 46 Year
  Sex: Female

DRUGS (10)
  1. CALCIUM [Concomitant]
     Active Substance: CALCIUM
  2. RESVERATROL [Concomitant]
     Active Substance: RESVERATROL
  3. MAGNACAP [Concomitant]
  4. OXYCODONE [Concomitant]
     Active Substance: OXYCODONE
  5. MIRALAX [Concomitant]
     Active Substance: POLYETHYLENE GLYCOL 3350
  6. AVASTIN [Concomitant]
     Active Substance: BEVACIZUMAB
  7. MORPHINE [Concomitant]
     Active Substance: MORPHINE
  8. CURCUMIN [Concomitant]
     Active Substance: CURCUMIN
  9. SEENA LAX [Concomitant]
  10. CAPECITABINE 500MG TEVA [Suspect]
     Active Substance: CAPECITABINE
     Indication: COLON CANCER
     Route: 048
     Dates: start: 201509, end: 201512

REACTIONS (3)
  - Vomiting [None]
  - Diarrhoea [None]
  - Dehydration [None]

NARRATIVE: CASE EVENT DATE: 20151118
